FAERS Safety Report 9796025 (Version 1)
Quarter: 2014Q1

REPORT INFORMATION
  Report Type: Spontaneous
  Country: US (occurrence: US)
  Receive Date: 20140103
  Receipt Date: 20140103
  Transmission Date: 20141002
  Serious: Yes (Hospitalization)
  Sender: FDA-Public Use
  Company Number: US-BAYER-2014-000801

PATIENT
  Age: 22 Year
  Sex: Female

DRUGS (4)
  1. YAZ [Suspect]
  2. ROZEREM [Concomitant]
     Indication: POOR QUALITY SLEEP
     Dosage: UNK
     Route: 048
     Dates: start: 20071012
  3. LUNESTA [Concomitant]
     Dosage: 2 MG, UNK
     Route: 048
     Dates: start: 20071012
  4. ANALPRAM-HC [Concomitant]
     Dosage: 2.5 %, UNK
     Route: 061
     Dates: start: 20071114

REACTIONS (2)
  - Pulmonary embolism [None]
  - Deep vein thrombosis [Recovered/Resolved]
